FAERS Safety Report 24809027 (Version 1)
Quarter: 2025Q1

REPORT INFORMATION
  Report Type: Report from Study
  Country: TW (occurrence: TW)
  Receive Date: 20250106
  Receipt Date: 20250106
  Transmission Date: 20250409
  Serious: Yes (Hospitalization, Other)
  Sender: ALEXION PHARMACEUTICALS
  Company Number: TW-AstraZeneca-CH-00776334A

PATIENT

DRUGS (20)
  1. DURVALUMAB [Suspect]
     Active Substance: DURVALUMAB
  2. DURVALUMAB [Suspect]
     Active Substance: DURVALUMAB
     Route: 041
  3. DURVALUMAB [Suspect]
     Active Substance: DURVALUMAB
  4. DURVALUMAB [Suspect]
     Active Substance: DURVALUMAB
     Route: 041
  5. DURVALUMAB [Suspect]
     Active Substance: DURVALUMAB
     Route: 041
  6. DURVALUMAB [Suspect]
     Active Substance: DURVALUMAB
     Route: 041
  7. DURVALUMAB [Suspect]
     Active Substance: DURVALUMAB
  8. DURVALUMAB [Suspect]
     Active Substance: DURVALUMAB
  9. DURVALUMAB [Suspect]
     Active Substance: DURVALUMAB
     Route: 041
  10. DURVALUMAB [Suspect]
     Active Substance: DURVALUMAB
  11. DURVALUMAB [Suspect]
     Active Substance: DURVALUMAB
  12. DURVALUMAB [Suspect]
     Active Substance: DURVALUMAB
     Route: 041
  13. DURVALUMAB [Suspect]
     Active Substance: DURVALUMAB
     Route: 041
  14. DURVALUMAB [Suspect]
     Active Substance: DURVALUMAB
  15. DURVALUMAB [Suspect]
     Active Substance: DURVALUMAB
  16. DURVALUMAB [Suspect]
     Active Substance: DURVALUMAB
     Route: 041
  17. DURVALUMAB [Suspect]
     Active Substance: DURVALUMAB
  18. DURVALUMAB [Suspect]
     Active Substance: DURVALUMAB
     Route: 041
  19. DURVALUMAB [Suspect]
     Active Substance: DURVALUMAB
  20. DURVALUMAB [Suspect]
     Active Substance: DURVALUMAB
     Route: 041

REACTIONS (1)
  - Brain neoplasm [Unknown]
